FAERS Safety Report 17902527 (Version 2)
Quarter: 2020Q3

REPORT INFORMATION
  Report Type: Spontaneous
  Country: US (occurrence: US)
  Receive Date: 20200617
  Receipt Date: 20200810
  Transmission Date: 20201103
  Serious: Yes (Other)
  Sender: FDA-Public Use
  Company Number: US-ROCHE-2573415

PATIENT
  Sex: Female

DRUGS (4)
  1. ACTEMRA [Suspect]
     Active Substance: TOCILIZUMAB
     Indication: FACIAL PARALYSIS
     Route: 058
     Dates: start: 20190926
  2. CLONIDINE. [Concomitant]
     Active Substance: CLONIDINE
  3. COREG [Concomitant]
     Active Substance: CARVEDILOL
  4. ESCITALOPRAM OXALATE. [Concomitant]
     Active Substance: ESCITALOPRAM OXALATE

REACTIONS (3)
  - Off label use [Unknown]
  - COVID-19 [Not Recovered/Not Resolved]
  - Intentional product use issue [Unknown]
